FAERS Safety Report 9234378 (Version 1)
Quarter: 2013Q2

REPORT INFORMATION
  Report Type: Spontaneous
  Country: IT (occurrence: IT)
  Receive Date: 20130416
  Receipt Date: 20130416
  Transmission Date: 20140414
  Serious: Yes (Hospitalization)
  Sender: FDA-Public Use
  Company Number: IT-B.I. PHARMACEUTICALS,INC./RIDGEFIELD-2013-IT-00243IT

PATIENT
  Age: 1 Year
  Sex: Male
  Weight: 12 kg

DRUGS (3)
  1. CATAPRESAN [Suspect]
     Route: 048
     Dates: start: 20130313, end: 20130313
  2. CONDIUREN [Suspect]
     Route: 048
     Dates: start: 20130313, end: 20130313
  3. ALMARYTM [Suspect]
     Route: 048
     Dates: start: 20130313, end: 20130313

REACTIONS (2)
  - Somnolence [Not Recovered/Not Resolved]
  - Unresponsive to stimuli [Not Recovered/Not Resolved]
